FAERS Safety Report 20662914 (Version 3)
Quarter: 2022Q3

REPORT INFORMATION
  Report Type: Other
  Country: CA (occurrence: CA)
  Receive Date: 20220401
  Receipt Date: 20220726
  Transmission Date: 20221027
  Serious: Yes (Hospitalization, Other)
  Sender: FDA-Public Use
  Company Number: CA-CELLTRION INC.-2022CA003843

PATIENT

DRUGS (2)
  1. RITUXIMAB [Suspect]
     Active Substance: RITUXIMAB
     Indication: Rheumatoid arthritis
     Dosage: 1000.0 MILLIGRAM
     Route: 042
  2. RITUXIMAB [Suspect]
     Active Substance: RITUXIMAB
     Dosage: 1000.0 MILLIGRAM
     Route: 042

REACTIONS (12)
  - Feeling abnormal [Recovered/Resolved]
  - Genital burning sensation [Recovered/Resolved]
  - Musculoskeletal discomfort [Recovered/Resolved]
  - Renal disorder [Recovered/Resolved]
  - Somnolence [Recovered/Resolved]
  - Injection site haemorrhage [Recovered/Resolved]
  - Blood pressure decreased [Recovered/Resolved]
  - Headache [Recovered/Resolved]
  - Heart rate increased [Recovered/Resolved]
  - Herpes zoster [Recovered/Resolved]
  - Hypotension [Recovered/Resolved]
  - Injection site pain [Recovered/Resolved]
